FAERS Safety Report 4362606-8 (Version None)
Quarter: 2004Q2

REPORT INFORMATION
  Report Type: 
  Country: None (occurrence: None)
  Receive Date: 20040521
  Receipt Date: 20040511
  Transmission Date: 20050107
  Serious: Yes (Hospitalization)
  Sender: FDA-Public Use
  Company Number: FR-MERCK-0405FRA00030

PATIENT
  Age: 83 Year
  Sex: Female

DRUGS (3)
  1. NICARDIPINE HYDROCHLORIDE [Concomitant]
     Indication: HYPERTENSION
     Route: 048
  2. RISEDRONATE SODIUM [Concomitant]
     Indication: SCIATICA
     Route: 048
     Dates: start: 20031226
  3. VIOXX [Suspect]
     Indication: SCIATICA
     Route: 048
     Dates: start: 20031226, end: 20040111

REACTIONS (1)
  - ASTHMA [None]
